FAERS Safety Report 6187034-4 (Version None)
Quarter: 2009Q2

REPORT INFORMATION
  Report Type: 
  Country: None (occurrence: None)
  Receive Date: 20090512
  Receipt Date: 20090430
  Transmission Date: 20091009
  Serious: Yes (Hospitalization)
  Sender: FDA-Public Use
  Company Number: DE-ELI_LILLY_AND_COMPANY-DE200904007167

PATIENT
  Sex: Male

DRUGS (5)
  1. CYMBALTA [Suspect]
     Dosage: 30 MG, DAILY (1/D)
     Route: 048
     Dates: start: 20090101
  2. MIRTAZAPINE [Concomitant]
     Dates: start: 20090101
  3. LYRICA [Concomitant]
     Dates: start: 20090101
  4. ASPIRIN [Concomitant]
  5. SIMVA [Concomitant]

REACTIONS (1)
  - THROMBOCYTOPENIA [None]
